FAERS Safety Report 9152436 (Version 1)
Quarter: 2013Q1

REPORT INFORMATION
  Report Type: Spontaneous
  Country: US (occurrence: US)
  Receive Date: 20130308
  Receipt Date: 20130308
  Transmission Date: 20140127
  Serious: Yes (Hospitalization)
  Sender: FDA-Public Use
  Company Number: US-LUNDBECK-DKLU1089235

PATIENT
  Sex: Female

DRUGS (2)
  1. SABRIL [Suspect]
     Indication: GRAND MAL CONVULSION
  2. SABRIL [Suspect]

REACTIONS (1)
  - Osteomyelitis [Unknown]
